FAERS Safety Report 12738015 (Version 1)
Quarter: 2016Q3

REPORT INFORMATION
  Report Type: Spontaneous
  Country: JP (occurrence: JP)
  Receive Date: 20160913
  Receipt Date: 20160913
  Transmission Date: 20161109
  Serious: Yes (Hospitalization)
  Sender: FDA-Public Use
  Company Number: JP-PFIZER INC-2016281056

PATIENT

DRUGS (3)
  1. SOMAVERT [Suspect]
     Active Substance: PEGVISOMANT
     Indication: ACROMEGALY
     Dosage: 10 MG, 2X/WEEK
     Route: 058
     Dates: start: 20160527, end: 20160615
  2. SOMAVERT [Suspect]
     Active Substance: PEGVISOMANT
     Dosage: 20 MG, CYCLIC(3 TIMES/WEEK)
     Dates: end: 20160818
  3. SOMAVERT [Suspect]
     Active Substance: PEGVISOMANT
     Indication: ACROMEGALY
     Dosage: 20 MG, CYCLIC(2 TIMES/WEEK)
     Route: 058
     Dates: end: 20160707

REACTIONS (2)
  - Brain neoplasm [Unknown]
  - Product use issue [Unknown]

NARRATIVE: CASE EVENT DATE: 20160527
